FAERS Safety Report 11769438 (Version 2)
Quarter: 2016Q4

REPORT INFORMATION
  Report Type: Report from Study
  Country: CN (occurrence: CN)
  Receive Date: 20151123
  Receipt Date: 20161020
  Transmission Date: 20170206
  Serious: Yes (Other)
  Sender: FDA-Public Use
  Company Number: CN-BAXALTA-2015BLT002827

PATIENT
  Age: 8 Year
  Sex: Male
  Weight: 42 kg

DRUGS (3)
  1. ADVATE [Suspect]
     Active Substance: ANTIHEMOPHILIC FACTOR, HUMAN RECOMBINANT
     Indication: HAEMORRHAGE PROPHYLAXIS
     Dosage: 700 IU, 3X A WEEK
     Route: 065
  2. ADVATE [Suspect]
     Active Substance: ANTIHEMOPHILIC FACTOR, HUMAN RECOMBINANT
     Indication: HAEMOPHILIA
     Dosage: 250 IU, 2X A WEEK
     Route: 042
     Dates: start: 2016
  3. ADVATE [Suspect]
     Active Substance: ANTIHEMOPHILIC FACTOR, HUMAN RECOMBINANT
     Dosage: 250 IU AFTER BLEEDING
     Route: 042
     Dates: start: 2016

REACTIONS (2)
  - Haemarthrosis [Recovering/Resolving]
  - Gingival bleeding [Recovered/Resolved]

NARRATIVE: CASE EVENT DATE: 20151115
